FAERS Safety Report 7440819 (Version 2)
Quarter: 2015Q3

REPORT INFORMATION
  Report Type: Report from Study
  Country: AU (occurrence: AU)
  Receive Date: 20100319
  Receipt Date: 20150703
  Transmission Date: 20151125
  Serious: Yes (Hospitalization, Other)
  Sender: FDA-Public Use
  Company Number: AU-ROCHE-644651

PATIENT
  Age: 53 Year
  Sex: Female
  Weight: 91.5 kg

DRUGS (11)
  1. RITUXIMAB [Suspect]
     Active Substance: RITUXIMAB
     Indication: DIFFUSE LARGE B-CELL LYMPHOMA
     Dosage: LAST DOSE PRIOR TO SAE: 07 JULY 2009. PERMANENTLY DISCONTINUED.
     Route: 042
     Dates: start: 20090428, end: 20090728
  2. DOXORUBICIN [Suspect]
     Active Substance: DOXORUBICIN
     Indication: DIFFUSE LARGE B-CELL LYMPHOMA
     Dosage: LAST DOSE PRIOR TO SAE: 07 JULY 2010. THERAPY PERMANENTLY DISCONTINUED.
     Route: 042
     Dates: start: 20090428, end: 20090728
  3. VINCRISTINE [Suspect]
     Active Substance: VINCRISTINE
     Indication: DIFFUSE LARGE B-CELL LYMPHOMA
     Dosage: LAST DOSE PRIOR TO SAE: 07 JULY 2010. PERMANENTLY DISCONTINUED.
     Route: 042
     Dates: start: 20090428, end: 20090728
  4. OSTEVIT-D [Concomitant]
     Route: 065
  5. FAMVIR (AUSTRALIA) [Concomitant]
     Route: 065
  6. PANADOL [Concomitant]
     Active Substance: ACETAMINOPHEN
     Route: 065
  7. PREDNISOLON [Concomitant]
     Active Substance: PREDNISOLONE
     Dosage: DRUG: PREDNISOLONE
     Route: 065
  8. PREDNISOLON [Suspect]
     Active Substance: PREDNISOLONE
     Indication: DIFFUSE LARGE B-CELL LYMPHOMA
     Dosage: FREQUENCY: DAY 1,2,3,4,5, EVERY 21 DAY. DRUG: PREDNISOLONE. LAST DOSE PRIOR TO SAE: 11 JULY 2010.
     Route: 048
     Dates: start: 20090428, end: 20090728
  9. FLUCONAZOLE. [Concomitant]
     Active Substance: FLUCONAZOLE
     Route: 065
  10. CYCLOPHOSPHAMIDE. [Suspect]
     Active Substance: CYCLOPHOSPHAMIDE
     Indication: DIFFUSE LARGE B-CELL LYMPHOMA
     Dosage: LAST DOSE PRIOR TO SAE: 07 JULY 2009. PERMANENTLY DISCONTINUED
     Route: 042
     Dates: start: 20090428, end: 20090728
  11. BEVACIZUMAB [Suspect]
     Active Substance: BEVACIZUMAB
     Indication: DIFFUSE LARGE B-CELL LYMPHOMA
     Dosage: DOSE BLINDED. LAST DOSE PRIOR TO SAE: 07 JULY 2010. PERMANENTLY DISCONTINUED
     Route: 042
     Dates: start: 20090427, end: 20090728

REACTIONS (2)
  - Congestive cardiomyopathy [Recovered/Resolved with Sequelae]
  - Multiple gated acquisition scan abnormal [Recovered/Resolved with Sequelae]

NARRATIVE: CASE EVENT DATE: 20090714
